FAERS Safety Report 6718524-0 (Version None)
Quarter: 2010Q2

REPORT INFORMATION
  Report Type: 
  Country: None (occurrence: None)
  Receive Date: 20100510
  Receipt Date: 20100505
  Transmission Date: 20101027
  Serious: Yes (Hospitalization)
  Sender: FDA-Public Use
  Company Number: GB-AMGEN-KDC410683

PATIENT
  Sex: Female
  Weight: 59 kg

DRUGS (2)
  1. PANITUMUMAB [Suspect]
     Indication: COLORECTAL CANCER
     Route: 042
     Dates: start: 20100422
  2. IRINOTECAN [Suspect]
     Route: 042
     Dates: start: 20100422

REACTIONS (1)
  - NEUTROPENIC SEPSIS [None]
